FAERS Safety Report 19435951 (Version 1)
Quarter: 2021Q2

REPORT INFORMATION
  Report Type: Spontaneous
  Country: US (occurrence: US)
  Receive Date: 20210618
  Receipt Date: 20210618
  Transmission Date: 20210717
  Serious: Yes (Life-Threatening, Hospitalization, Congenital Anomaly)
  Sender: FDA-Public Use
  Company Number: US-MYLANLABS-2021M1035227

PATIENT
  Age: 1 Day
  Sex: Male

DRUGS (2)
  1. ACETAMINOPHEN. [Suspect]
     Active Substance: ACETAMINOPHEN
     Indication: DISCOMFORT
  2. ACETAMINOPHEN. [Suspect]
     Active Substance: ACETAMINOPHEN
     Indication: DRUG THERAPY
     Dosage: 1000 MILLIGRAM,1?2 TIMES PER DAY
     Route: 064

REACTIONS (5)
  - Pulmonary hypertension [Recovered/Resolved]
  - Respiratory failure [Recovered/Resolved]
  - Right ventricular dysfunction [Recovered/Resolved]
  - Ductus arteriosus premature closure [Recovered/Resolved]
  - Foetal exposure during pregnancy [Recovered/Resolved]
